FAERS Safety Report 17159602 (Version 1)
Quarter: 2019Q4

REPORT INFORMATION
  Report Type: Spontaneous
  Country: DE (occurrence: DE)
  Receive Date: 20191216
  Receipt Date: 20191216
  Transmission Date: 20200122
  Serious: Yes (Congenital Anomaly)
  Sender: FDA-Public Use
  Company Number: NVSC2019DE064375

PATIENT
  Sex: Male
  Weight: 3.5 kg

DRUGS (18)
  1. PREDNISOLONE. [Suspect]
     Active Substance: PREDNISOLONE
     Indication: PROPHYLAXIS OF ABORTION
     Dosage: MATERNAL DOSE: 5 MG, QD
     Route: 064
  2. PROGESTERON [Concomitant]
     Active Substance: PROGESTERONE
     Indication: PROPHYLAXIS OF ABORTION
     Dosage: DOSE: 600 MG, QD (600 [MG/D (BIS 200 MG/D) ]/ SINCE GESTATIONAL WEEK 11+2: 200 MG/D)
     Route: 064
  3. AGYRAX [Suspect]
     Active Substance: MECLIZINE HYDROCHLORIDE
     Indication: MORNING SICKNESS
     Dosage: MATERNAL DOSE: 50 MG, QD (50 [MG/D (2X25 MG))
     Route: 064
     Dates: start: 20180702
  4. GONAL-F [Concomitant]
     Active Substance: FOLLITROPIN
     Indication: INFERTILITY FEMALE
     Dosage: UNK UNK, UNKNOWN
     Route: 064
  5. MCP [Concomitant]
     Active Substance: METOCLOPRAMIDE HYDROCHLORIDE
     Dosage: MATERNAL DOSE: 10 MG, QD (AND ORALLY)
     Route: 064
     Dates: start: 20180724
  6. OVITRELLE [Concomitant]
     Active Substance: CHORIOGONADOTROPIN ALFA
     Indication: INFERTILITY FEMALE
     Dosage: UNK UNK, UNKNOWN
     Route: 064
  7. VOMEX A [Concomitant]
     Active Substance: DIMENHYDRINATE
     Dosage: UNK UNK, UNKNOWN
     Route: 064
     Dates: start: 20180721
  8. PROLUTEX [Concomitant]
     Active Substance: PROGESTERONE
     Dosage: MATERNAL DOSE: 25 MG, QD
     Route: 064
     Dates: start: 20180709
  9. INSULIN BASAL [Concomitant]
     Active Substance: INSULIN NOS
     Indication: GESTATIONAL DIABETES
     Dosage: DOSE: (3 [I.E./D (ZUR NACHT))
     Route: 064
  10. MCP [Concomitant]
     Active Substance: METOCLOPRAMIDE HYDROCHLORIDE
     Indication: HYPEREMESIS GRAVIDARUM
     Dosage: MATERNAL DOSE: 10 MG, QD (AND ORALLY)
     Route: 064
     Dates: start: 20180722
  11. MISODEL [Concomitant]
     Indication: LABOUR INDUCTION
     Dosage: UNK UNK, UNKNOWN
     Route: 064
  12. AGYRAX [Suspect]
     Active Substance: MECLIZINE HYDROCHLORIDE
     Dosage: MATERNAL DOSE: 50 MG, QD (50 [MG/D (2X25 MG))
     Route: 064
     Dates: start: 20180723
  13. L-THYROXINE [Concomitant]
     Active Substance: LEVOTHYROXINE
     Indication: THYROID DISORDER
     Dosage: MATERNAL DOSE: 50 UG, QD
     Route: 064
     Dates: start: 20180505
  14. ZOFRAN [Concomitant]
     Active Substance: ONDANSETRON HYDROCHLORIDE
     Indication: MORNING SICKNESS
     Dosage: UNK UNK, UNKNOWN
     Route: 064
  15. CLEXANE [Concomitant]
     Active Substance: ENOXAPARIN SODIUM
     Indication: PROPHYLAXIS OF ABORTION
     Dosage: MATERNAL DOSE: 20 MG QD
     Route: 064
  16. L-THYROXINE [Concomitant]
     Active Substance: LEVOTHYROXINE
     Dosage: MATERNAL DOSE: 50 UG, QD
     Route: 064
     Dates: start: 20190205
  17. VOMEX A [Concomitant]
     Active Substance: DIMENHYDRINATE
     Indication: MORNING SICKNESS
     Dosage: UNK UNK, UNKNOWN
     Route: 064
     Dates: start: 20180720
  18. PROLUTEX [Concomitant]
     Active Substance: PROGESTERONE
     Indication: PROPHYLAXIS OF ABORTION
     Dosage: MATERNAL DOSE: 25 MG, QD
     Route: 064
     Dates: start: 20180524

REACTIONS (3)
  - Pyelocaliectasis [Not Recovered/Not Resolved]
  - Foetal exposure during pregnancy [Unknown]
  - Kidney duplex [Not Recovered/Not Resolved]
